FAERS Safety Report 9287741 (Version 2)
Quarter: 2013Q2

REPORT INFORMATION
  Report Type: Spontaneous
  Country: AT (occurrence: AT)
  Receive Date: 20130514
  Receipt Date: 20130528
  Transmission Date: 20140414
  Serious: Yes (Disabling)
  Sender: FDA-Public Use
  Company Number: AT-AMGEN-AUTSP2013032798

PATIENT
  Age: 86 Year
  Sex: Male
  Weight: 82 kg

DRUGS (6)
  1. XGEVA [Suspect]
     Indication: PROSTATE CANCER METASTATIC
     Dosage: 1.7 ML, Q4WK
     Route: 058
     Dates: start: 201302
  2. PREDNISOLONE [Suspect]
     Dosage: 5 MG, QD
     Dates: start: 201302
  3. ZYTIGA [Suspect]
     Dosage: 1000 MG, QD
     Dates: start: 201302
  4. FINASTERIDE [Suspect]
     Dosage: 5 MG, QD
  5. DOXAZOCIN [Suspect]
     Dosage: 4 MG, QD
  6. MAXICALC D [Suspect]
     Dosage: 8 G, QD

REACTIONS (2)
  - Arrhythmia [Not Recovered/Not Resolved]
  - Hyperkalaemia [Not Recovered/Not Resolved]
